FAERS Safety Report 8801495 (Version 1)
Quarter: 2012Q4

REPORT INFORMATION
  Report Type: 
  Country: IN (occurrence: IN)
  Receive Date: 20120921
  Receipt Date: 20120921
  Transmission Date: 20130627
  Serious: Yes (Death, Hospitalization)
  Sender: FDA-Public Use
  Company Number: IN-PERRIGO-12IN007880

PATIENT
  Age: 8 Year
  Sex: Female

DRUGS (1)
  1. NAPROXEN SODIUM [Suspect]
     Indication: PRODUCT USED FOR UNKNOWN INDICATION
     Dosage: UNK
     Route: 065

REACTIONS (8)
  - Histiocytosis haematophagic [Fatal]
  - Shock [Fatal]
  - Pulmonary haemorrhage [Fatal]
  - Haemorrhage [Fatal]
  - Irritability [Unknown]
  - Lymphadenopathy [Unknown]
  - Meningism [Unknown]
  - Serum ferritin increased [Unknown]
